FAERS Safety Report 7958135-2 (Version None)
Quarter: 2011Q4

REPORT INFORMATION
  Report Type: 
  Country: None (occurrence: None)
  Receive Date: 20111205
  Receipt Date: 20111123
  Transmission Date: 20120403
  Serious: Yes (Hospitalization)
  Sender: FDA-Public Use
  Company Number: PHHO2011NL17887

PATIENT
  Age: 50 Year
  Sex: Female

DRUGS (10)
  1. NO TREATMENT RECEIVED [Suspect]
     Indication: BREAST CANCER
     Dosage: NO TREATMENT
  2. ADRIAMYCIN PFS [Concomitant]
     Indication: BREAST CANCER
     Dosage: 78 MG, UNK
     Route: 042
     Dates: start: 20110718
  3. ACETAMINOPHEN [Concomitant]
     Dosage: UNK
     Dates: start: 20110701
  4. ONDANSETRON [Concomitant]
  5. NEULASTA [Concomitant]
  6. METOCLOPRAMIDE [Concomitant]
     Dosage: UNK
     Dates: start: 20110701
  7. TAXOTERE [Suspect]
     Indication: BREAST CANCER
     Dosage: 120 MG, UNK
     Route: 042
     Dates: start: 20110718
  8. LEVOTHYROXINE SODIUM [Concomitant]
     Dosage: UNK
  9. CYCLOPHOSPHAMIDE [Suspect]
     Dosage: 780 MG, UNK
     Route: 042
     Dates: start: 20110718
  10. DEXAMETHASONE [Suspect]
     Indication: PROPHYLAXIS
     Dosage: UNK

REACTIONS (3)
  - STREPTOCOCCAL INFECTION [None]
  - ANAL FISTULA [None]
  - PYREXIA [None]
